FAERS Safety Report 5024106-1 (Version None)
Quarter: 2006Q2

REPORT INFORMATION
  Report Type: 
  Country: None (occurrence: None)
  Receive Date: 20060607
  Receipt Date: 20060522
  Transmission Date: 20061013
  Serious: Yes (Hospitalization, Other)
  Sender: FDA-Public Use
  Company Number: 2005BI015409

PATIENT
  Age: 57 Year
  Sex: Female
  Weight: 96.6162 kg

DRUGS (7)
  1. AVONEX [Suspect]
     Indication: MULTIPLE SCLEROSIS
     Dosage: 30 UG; QW; IM
     Route: 030
     Dates: start: 19980901
  2. BENICAR [Concomitant]
  3. AMANTADINE HCL [Concomitant]
  4. LOVASTATIN [Concomitant]
  5. FLUOXETINE [Concomitant]
  6. GLUCOSAMINE [Concomitant]
  7. MULTI-VITAMIN [Concomitant]

REACTIONS (6)
  - BASAL CELL CARCINOMA [None]
  - GASTROOESOPHAGEAL REFLUX DISEASE [None]
  - HYPERCHOLESTEROLAEMIA [None]
  - HYPERTENSION [None]
  - OVARIAN EPITHELIAL CANCER [None]
  - TRIGEMINAL NEURALGIA [None]
